FAERS Safety Report 21389395 (Version 1)
Quarter: 2022Q3

REPORT INFORMATION
  Report Type: Spontaneous
  Country: US (occurrence: US)
  Receive Date: 20220929
  Receipt Date: 20220929
  Transmission Date: 20221027
  Serious: Yes (Hospitalization)
  Sender: FDA-Public Use
  Company Number: US-RECORDATI RARE DISEASES INC.-2021003376

PATIENT
  Age: 29 Year

DRUGS (1)
  1. PANHEMATIN [Suspect]
     Active Substance: HEMIN
     Indication: Product used for unknown indication
     Dosage: FOUR DAYS A WEEK
     Route: 065
     Dates: start: 202010

REACTIONS (1)
  - Illness [Not Recovered/Not Resolved]

NARRATIVE: CASE EVENT DATE: 20210818
